FAERS Safety Report 10032739 (Version 1)
Quarter: 2014Q1

REPORT INFORMATION
  Report Type: Spontaneous
  Country: MX (occurrence: MX)
  Receive Date: 20140324
  Receipt Date: 20140324
  Transmission Date: 20141002
  Serious: Yes (Hospitalization)
  Sender: FDA-Public Use
  Company Number: MX-BAYER-2014-043217

PATIENT
  Age: 39 Year
  Sex: Female

DRUGS (1)
  1. NEXAVAR [Suspect]
     Indication: HEPATIC CANCER
     Dosage: 4 TABLETS DAILY
     Route: 048

REACTIONS (4)
  - Pyrexia [Unknown]
  - Rash generalised [Unknown]
  - Generalised oedema [Unknown]
  - Eye disorder [Unknown]
